FAERS Safety Report 8600529 (Version 3)
Quarter: 2012Q4

REPORT INFORMATION
  Report Type: 
  Country: US (occurrence: US)
  Receive Date: 20120606
  Receipt Date: 20120925
  Transmission Date: 20130627
  Serious: No
  Sender: FDA-Public Use
  Company Number: US-PFIZER INC-2012132668

PATIENT
  Age: 54 Year
  Sex: Female
  Weight: 68 kg

DRUGS (6)
  1. LYRICA [Suspect]
     Indication: FIBROMYALGIA
     Dosage: 225 mg, 2x/day
     Dates: end: 20120529
  2. CLONIDINE [Concomitant]
     Indication: HYPERTENSION
     Dosage: UNK, 2x/day
  3. LISINOPRIL [Concomitant]
     Indication: HYPERTENSION
     Dosage: UNK, daily
  4. SAVELLA [Concomitant]
     Indication: FIBROMYALGIA
     Dosage: UNK, 2x/day
     Dates: start: 2011
  5. NORCO [Concomitant]
     Indication: TOOTHACHE
     Dosage: UNK
     Dates: start: 2012
  6. TRAZODONE [Concomitant]
     Indication: DEPRESSION
     Dosage: 50 mg, daily

REACTIONS (10)
  - Drug withdrawal syndrome [Not Recovered/Not Resolved]
  - Feeling abnormal [Not Recovered/Not Resolved]
  - Hot flush [Not Recovered/Not Resolved]
  - Feeling cold [Not Recovered/Not Resolved]
  - Hyperhidrosis [Not Recovered/Not Resolved]
  - Sneezing [Not Recovered/Not Resolved]
  - Diarrhoea [Not Recovered/Not Resolved]
  - Decreased appetite [Not Recovered/Not Resolved]
  - Rhinorrhoea [Not Recovered/Not Resolved]
  - Pain [Not Recovered/Not Resolved]
